FAERS Safety Report 25032214 (Version 6)
Quarter: 2025Q2

REPORT INFORMATION
  Report Type: Spontaneous
  Country: AR (occurrence: AR)
  Receive Date: 20250303
  Receipt Date: 20250506
  Transmission Date: 20250717
  Serious: No
  Sender: PFIZER
  Company Number: AR-PFIZER INC-202500044510

PATIENT
  Age: 12 Year
  Sex: Female

DRUGS (1)
  1. GENOTROPIN [Suspect]
     Active Substance: SOMATROPIN
     Indication: Foetal growth restriction
     Dates: start: 20220309, end: 20250223

REACTIONS (2)
  - Drug dose omission by device [Unknown]
  - Device information output issue [Unknown]

NARRATIVE: CASE EVENT DATE: 20250219
